FAERS Safety Report 6861386-1 (Version None)
Quarter: 2010Q3

REPORT INFORMATION
  Report Type: 
  Country: None (occurrence: None)
  Receive Date: 20100720
  Receipt Date: 20100706
  Transmission Date: 20110219
  Serious: Yes (Hospitalization)
  Sender: FDA-Public Use
  Company Number: US-BAYER-201020520NA

PATIENT
  Age: 44 Year
  Sex: Female
  Weight: 104 kg

DRUGS (12)
  1. YAZ [Suspect]
     Indication: PRODUCT USED FOR UNKNOWN INDICATION
     Dates: start: 20071201, end: 20091226
  2. NAPROXEN [Concomitant]
  3. VITAMIN C [Concomitant]
  4. PROPOXYPHENE HCL [Concomitant]
  5. ROPINIROLE [Concomitant]
  6. ZOLOFT [Concomitant]
  7. AMITRIPTYLINE HYDROCHLORIDE [Concomitant]
  8. REQUIP [Concomitant]
  9. PREVACID [Concomitant]
  10. PAXIL [Concomitant]
  11. MULTI-VITAMIN [Concomitant]
  12. SERTRALINE HCL [Concomitant]

REACTIONS (4)
  - ABDOMINAL PAIN [None]
  - NAUSEA [None]
  - PANCREATITIS [None]
  - VOMITING [None]
